FAERS Safety Report 20081002 (Version 2)
Quarter: 2022Q1

REPORT INFORMATION
  Report Type: Report from Study
  Country: US (occurrence: US)
  Receive Date: 20211117
  Receipt Date: 20220124
  Transmission Date: 20220423
  Serious: Yes (Death, Life-Threatening, Hospitalization, Disabling, Other)
  Sender: FDA-Public Use
  Company Number: US-Clinigen Group PLC/ Clinigen Healthcare Ltd-US-CLGN-20-00353

PATIENT
  Age: 51 Year
  Sex: Female
  Weight: 86.6 kg

DRUGS (63)
  1. PROLEUKIN [Suspect]
     Active Substance: ALDESLEUKIN
     Indication: Cervix carcinoma
     Route: 042
     Dates: start: 20190716, end: 20190718
  2. LIFILEUCEL [Suspect]
     Active Substance: LIFILEUCEL
     Indication: Cervix carcinoma
     Route: 042
     Dates: start: 20190716, end: 20190716
  3. CYCLOPHOSPHAMIDE [Suspect]
     Active Substance: CYCLOPHOSPHAMIDE
     Indication: Cervix carcinoma
     Route: 042
     Dates: start: 20190709, end: 20190710
  4. FLUDARABINE [Suspect]
     Active Substance: FLUDARABINE PHOSPHATE
     Indication: Cervix carcinoma
     Route: 042
     Dates: start: 20190711, end: 20190715
  5. HUMULIN N [Concomitant]
     Active Substance: INSULIN HUMAN
     Indication: Type 1 diabetes mellitus
     Route: 058
  6. NOVOLIN R [Concomitant]
     Active Substance: INSULIN HUMAN
     Indication: Type 1 diabetes mellitus
     Route: 058
  7. SYNTHROID [Concomitant]
     Active Substance: LEVOTHYROXINE SODIUM
     Indication: Hypothyroidism
     Route: 048
     Dates: end: 20190709
  8. SYNTHROID [Concomitant]
     Active Substance: LEVOTHYROXINE SODIUM
     Route: 048
     Dates: end: 20190709
  9. PEPCID [Concomitant]
     Active Substance: FAMOTIDINE
     Indication: Gastrooesophageal reflux disease
     Route: 048
     Dates: start: 20190308
  10. LEVAQUIN [Concomitant]
     Active Substance: LEVOFLOXACIN
     Indication: Urinary tract infection
     Route: 048
     Dates: start: 20190619, end: 20190624
  11. LEVAQUIN [Concomitant]
     Active Substance: LEVOFLOXACIN
     Route: 048
     Dates: start: 20190712, end: 20190714
  12. LEVAQUIN [Concomitant]
     Active Substance: LEVOFLOXACIN
     Route: 042
     Dates: start: 20190715, end: 20190715
  13. LOVENOX [Concomitant]
     Active Substance: ENOXAPARIN SODIUM
     Indication: Pulmonary embolism
     Route: 058
     Dates: start: 20190628, end: 20190716
  14. LOVENOX [Concomitant]
     Active Substance: ENOXAPARIN SODIUM
     Route: 058
     Dates: start: 20190722, end: 20190722
  15. ACETAMINOPHEN\CODEINE PHOSPHATE [Concomitant]
     Active Substance: ACETAMINOPHEN\CODEINE PHOSPHATE
     Indication: Abdominal pain
     Route: 048
     Dates: start: 20190628, end: 20190724
  16. ZOFRAN [Concomitant]
     Active Substance: ONDANSETRON HYDROCHLORIDE
     Indication: Nausea
     Route: 060
     Dates: start: 20190719, end: 20190722
  17. ZOFRAN [Concomitant]
     Active Substance: ONDANSETRON HYDROCHLORIDE
     Route: 042
     Dates: start: 20190718, end: 20190731
  18. REGLAN [Concomitant]
     Active Substance: METOCLOPRAMIDE HYDROCHLORIDE
     Indication: Nausea
     Route: 048
     Dates: start: 20190722, end: 20190723
  19. OXYCODONE [Concomitant]
     Active Substance: OXYCODONE
     Indication: Abdominal pain lower
     Route: 048
     Dates: start: 20190708, end: 20190804
  20. OXYCODONE [Concomitant]
     Active Substance: OXYCODONE
     Indication: Abdominal pain
  21. ATIVAN [Concomitant]
     Active Substance: LORAZEPAM
     Indication: Anxiety
     Route: 042
     Dates: start: 20190715, end: 20190804
  22. VANCOMYCIN [Concomitant]
     Active Substance: VANCOMYCIN
     Indication: Urinary tract infection
     Route: 042
     Dates: start: 20190715
  23. MICAFUNGIN [Concomitant]
     Active Substance: MICAFUNGIN
     Indication: Antifungal prophylaxis
     Route: 042
     Dates: start: 20190717, end: 20190719
  24. DIFLUCAN [Concomitant]
     Active Substance: FLUCONAZOLE
     Indication: Antifungal prophylaxis
     Route: 048
     Dates: start: 20190720, end: 20190720
  25. DIFLUCAN [Concomitant]
     Active Substance: FLUCONAZOLE
     Indication: Prophylaxis
     Route: 048
     Dates: start: 20190721, end: 20190722
  26. DIFLUCAN [Concomitant]
     Active Substance: FLUCONAZOLE
     Route: 048
     Dates: start: 20190723, end: 20190727
  27. ACYCLOVIR [Concomitant]
     Active Substance: ACYCLOVIR
     Indication: Herpes simplex
     Route: 048
     Dates: start: 20190717, end: 20190804
  28. FILGRASTIM [Concomitant]
     Active Substance: FILGRASTIM
     Indication: Neutropenia
     Route: 058
     Dates: start: 20190717, end: 20190728
  29. POTASSIUM CHLORIDE [Concomitant]
     Active Substance: POTASSIUM CHLORIDE
     Indication: Hypokalaemia
     Route: 042
     Dates: start: 20190727, end: 20190728
  30. POTASSIUM CHLORIDE [Concomitant]
     Active Substance: POTASSIUM CHLORIDE
     Indication: Prophylaxis
     Route: 042
     Dates: start: 20190723, end: 20190728
  31. MAGNESIUM SULFATE [Concomitant]
     Active Substance: MAGNESIUM SULFATE
     Indication: Hypomagnesaemia
     Route: 042
     Dates: start: 20190717, end: 20190728
  32. MAGNESIUM SULFATE [Concomitant]
     Active Substance: MAGNESIUM SULFATE
     Indication: Prophylaxis
     Route: 042
     Dates: start: 20190722, end: 20190730
  33. PYRIDIUM [Concomitant]
     Active Substance: PHENAZOPYRIDINE
     Indication: Urinary tract infection
     Route: 048
     Dates: start: 20190710, end: 20190729
  34. PYRIDIUM [Concomitant]
     Active Substance: PHENAZOPYRIDINE
     Indication: Dysuria
  35. LASIX [Concomitant]
     Active Substance: FUROSEMIDE
     Indication: Acute kidney injury
     Route: 042
     Dates: start: 20190718, end: 20190730
  36. LASIX [Concomitant]
     Active Substance: FUROSEMIDE
     Indication: Weight increased
  37. LASIX [Concomitant]
     Active Substance: FUROSEMIDE
     Indication: Oedema peripheral
  38. SENNA [Concomitant]
     Active Substance: SENNA LEAF\SENNOSIDES\SENNOSIDES A AND B
     Indication: Constipation
     Route: 048
     Dates: start: 20190720, end: 20190803
  39. COLACE [Concomitant]
     Active Substance: DOCUSATE SODIUM
     Indication: Constipation
     Route: 048
     Dates: start: 20190709, end: 20190731
  40. MAG-AL PLUS [Concomitant]
     Active Substance: ALUMINUM HYDROXIDE\DIMETHICONE\MAGNESIUM HYDROXIDE
     Indication: Gastrooesophageal reflux disease
     Route: 048
     Dates: start: 20190710, end: 20190728
  41. LIORESAL [Concomitant]
     Active Substance: BACLOFEN
     Indication: Bronchospasm
     Route: 048
     Dates: start: 20190709, end: 20190710
  42. MIRALAX [Concomitant]
     Active Substance: POLYETHYLENE GLYCOL 3350
     Indication: Constipation
     Route: 048
     Dates: start: 20190708
  43. ZYRTEC [Concomitant]
     Active Substance: CETIRIZINE HYDROCHLORIDE
     Indication: Pruritus
     Route: 048
     Dates: start: 20190723, end: 20190730
  44. ZYRTEC [Concomitant]
     Active Substance: CETIRIZINE HYDROCHLORIDE
     Indication: Chemotherapy side effect prophylaxis
     Route: 048
     Dates: start: 20190426, end: 20190426
  45. ACETAMINOPHEN [Concomitant]
     Active Substance: ACETAMINOPHEN
     Indication: Abdominal pain
     Route: 048
     Dates: start: 20190426, end: 20190718
  46. ACETAMINOPHEN [Concomitant]
     Active Substance: ACETAMINOPHEN
     Indication: Abdominal pain lower
     Route: 048
     Dates: start: 20190610, end: 20190610
  47. ALBUMIN HUMAN [Concomitant]
     Active Substance: ALBUMIN HUMAN
     Indication: Prophylaxis
     Route: 042
     Dates: start: 20190717, end: 20190718
  48. CALCIUM GLUCONATE [Concomitant]
     Active Substance: CALCIUM GLUCONATE
     Indication: Hypocalcaemia
     Route: 042
     Dates: start: 20190717, end: 20190728
  49. CALCIUM\VITAMIN D [Concomitant]
     Active Substance: CALCIUM\VITAMIN D
     Indication: Hypocalcaemia
     Route: 048
     Dates: start: 20190716, end: 20190718
  50. DEXTROSE [Concomitant]
     Active Substance: DEXTROSE
     Indication: Diabetes mellitus
     Route: 042
     Dates: start: 20190709, end: 20190805
  51. DEXTROSE [Concomitant]
     Active Substance: DEXTROSE
     Indication: Hypoglycaemia
  52. DIPHENHYDRAMINE [Concomitant]
     Active Substance: DIPHENHYDRAMINE
     Indication: Infusion related reaction
     Route: 042
     Dates: start: 20190710, end: 20190710
  53. DIPHENHYDRAMINE [Concomitant]
     Active Substance: DIPHENHYDRAMINE
     Indication: Prophylaxis
     Route: 048
     Dates: start: 20190716, end: 20190716
  54. DIPHENHYDRAMINE [Concomitant]
     Active Substance: DIPHENHYDRAMINE
     Indication: Pruritus
     Route: 048
     Dates: start: 20190724, end: 20190730
  55. DIPHENHYDRAMINE [Concomitant]
     Active Substance: DIPHENHYDRAMINE
     Indication: Chemotherapy side effect prophylaxis
     Route: 048
     Dates: start: 20190425, end: 20190425
  56. FOSAPREPITANT [Concomitant]
     Active Substance: FOSAPREPITANT
     Indication: Chemotherapy side effect prophylaxis
     Route: 042
     Dates: start: 20190709, end: 20190716
  57. FOSAPREPITANT [Concomitant]
     Active Substance: FOSAPREPITANT
     Route: 042
     Dates: start: 20190426, end: 20190426
  58. IBUPROFEN [Concomitant]
     Active Substance: IBUPROFEN
     Indication: Abdominal pain
     Route: 048
     Dates: start: 20190716, end: 20190718
  59. LACTULOSE [Concomitant]
     Active Substance: LACTULOSE
     Indication: Constipation
     Route: 048
     Dates: start: 20190721, end: 20190731
  60. SODIUM CHLORIDE [Concomitant]
     Active Substance: SODIUM CHLORIDE
     Indication: Hyponatraemia
     Route: 042
     Dates: start: 20190708
  61. SODIUM PHOSPHATE [Concomitant]
     Active Substance: SODIUM PHOSPHATE
     Indication: Hypophosphataemia
     Route: 042
     Dates: start: 20190710, end: 20190729
  62. DEMEROL [Concomitant]
     Active Substance: MEPERIDINE HYDROCHLORIDE
     Indication: Chills
     Route: 042
     Dates: start: 20190716, end: 20190717
  63. MAALOX-LIDOCAINE VISCOUS-DIPHENHYDRAMINE [Concomitant]
     Indication: Stomatitis

REACTIONS (8)
  - Multiple organ dysfunction syndrome [Fatal]
  - Vaginal haemorrhage [Recovered/Resolved]
  - Diabetic ketoacidosis [Not Recovered/Not Resolved]
  - Hyponatraemia [Not Recovered/Not Resolved]
  - White blood cell count increased [Not Recovered/Not Resolved]
  - Platelet count decreased [Recovered/Resolved]
  - Acute kidney injury [Not Recovered/Not Resolved]
  - Hypothyroidism [Not Recovered/Not Resolved]

NARRATIVE: CASE EVENT DATE: 20190716
